FAERS Safety Report 5718448-1 (Version None)
Quarter: 2008Q2

REPORT INFORMATION
  Report Type: 
  Country: None (occurrence: None)
  Receive Date: 20080425
  Receipt Date: 20080416
  Transmission Date: 20081010
  Serious: Yes (Other)
  Sender: FDA-Public Use
  Company Number: NZ-JNJFOC-20080404489

PATIENT
  Age: 51 Year
  Sex: Female

DRUGS (2)
  1. RISPERIDONE [Suspect]
     Indication: SCHIZOPHRENIA
  2. CLONAZEPAM [Concomitant]
     Indication: ANXIETY DISORDER

REACTIONS (2)
  - BLOOD PROLACTIN INCREASED [None]
  - BREAST CANCER [None]
